FAERS Safety Report 24539669 (Version 1)
Quarter: 2024Q4

REPORT INFORMATION
  Report Type: Spontaneous
  Country: US (occurrence: US)
  Receive Date: 20241023
  Receipt Date: 20241023
  Transmission Date: 20250115
  Serious: No
  Sender: PRASCO
  Company Number: US-Prasco Laboratories-PRAS20241179

PATIENT
  Sex: Female

DRUGS (2)
  1. ESTRADIOL [Suspect]
     Active Substance: ESTRADIOL
     Indication: Product used for unknown indication
     Dosage: 1 G
     Route: 067
  2. ATORVASTATIN CALCIUM [Concomitant]
     Active Substance: ATORVASTATIN CALCIUM

REACTIONS (6)
  - Female sex hormone level abnormal [Unknown]
  - Overdose [None]
  - Product delivery mechanism issue [None]
  - Device use confusion [None]
  - Product use complaint [None]
  - Product dose omission issue [None]
